FAERS Safety Report 8618228-3 (Version None)
Quarter: 2012Q3

REPORT INFORMATION
  Report Type: 
  Country: None (occurrence: None)
  Receive Date: 20120824
  Receipt Date: 20120817
  Transmission Date: 20120928
  Serious: Yes (Death, Other)
  Sender: FDA-Public Use
  Company Number: DE-AMGEN-DEUSP2012052928

PATIENT
  Age: 61 Year
  Sex: Male
  Weight: 135 kg

DRUGS (3)
  1. ENBREL [Suspect]
     Indication: PSORIASIS
     Dosage: 50 MG, WEEKLY
     Route: 058
     Dates: start: 20100805, end: 20111101
  2. ENBREL [Suspect]
     Dosage: 50 MG, WEEKLY
     Route: 058
     Dates: start: 20120201, end: 20120301
  3. STELARA [Suspect]
     Indication: PSORIASIS
     Dosage: 90 MG, ONCE EVERY TWELVE WEEKS ADMINISTERED ONCE
     Route: 058
     Dates: start: 20111201, end: 20120101

REACTIONS (3)
  - RENAL FAILURE [None]
  - HEPATIC NEOPLASM MALIGNANT [None]
  - DISEASE PROGRESSION [None]
